FAERS Safety Report 10253050 (Version 1)
Quarter: 2014Q2

REPORT INFORMATION
  Report Type: Spontaneous
  Country: CH (occurrence: CH)
  Receive Date: 20140623
  Receipt Date: 20140623
  Transmission Date: 20141212
  Serious: Yes (Hospitalization)
  Sender: FDA-Public Use
  Company Number: CH-BAYER-2014-087493

PATIENT
  Age: 76 Year
  Sex: Female

DRUGS (10)
  1. ASPIRIN CARDIO [Suspect]
     Indication: HYPERTENSIVE HEART DISEASE
     Dosage: 100 MG, QD
     Route: 048
  2. NOVALGIN [Suspect]
     Indication: SCIATICA
     Dosage: 1 G, UNK
     Route: 040
     Dates: start: 20140507, end: 20140507
  3. NOVALGIN [Suspect]
     Indication: SCIATICA
     Dosage: 20 GTT, QID
     Route: 048
     Dates: start: 20140507, end: 20140509
  4. SAROTEN [Suspect]
     Indication: SCIATICA
     Dosage: 50 MG, QD
     Route: 048
     Dates: start: 20140507, end: 20140509
  5. DAFALGAN [Concomitant]
     Dosage: 500 MG, QID
     Dates: start: 20140507
  6. PANTOZOL [Concomitant]
     Dosage: 40 MG, QD
     Dates: start: 20140507
  7. SIRDALUD [Concomitant]
     Dosage: 2 MG, QD
     Dates: start: 20140507
  8. CANDESARTAN CILEXETIL W/HYDROCHLOROTHIAZIDE [Concomitant]
     Dosage: 1 DF, UNK
  9. BELOC [Concomitant]
     Dosage: 1 DF, UNK
  10. ATORVASTATIN [Concomitant]
     Dosage: 40 MG, UNK

REACTIONS (5)
  - Red blood cell abnormality [Recovering/Resolving]
  - Neutropenia [Recovered/Resolved]
  - Leukopenia [Recovering/Resolving]
  - Platelet count decreased [Recovering/Resolving]
  - Anaemia [Recovering/Resolving]
